FAERS Safety Report 25005276 (Version 1)
Quarter: 2025Q1

REPORT INFORMATION
  Report Type: Spontaneous
  Country: US (occurrence: None)
  Receive Date: 20250224
  Receipt Date: 20250224
  Transmission Date: 20250409
  Serious: Yes (Hospitalization, Other)
  Sender: FDA-CTU
  Company Number: None

PATIENT
  Age: 42 Year
  Sex: Female
  Weight: 97.65 kg

DRUGS (3)
  1. OZEMPIC [Suspect]
     Active Substance: SEMAGLUTIDE
     Route: 030
  2. EFFEXOR [Concomitant]
     Active Substance: VENLAFAXINE HYDROCHLORIDE
  3. IRON [Concomitant]
     Active Substance: IRON

REACTIONS (7)
  - Cholecystectomy [None]
  - Dysphagia [None]
  - Rash [None]
  - Respiratory tract infection [None]
  - Bronchitis [None]
  - Pneumonia [None]
  - Laryngitis [None]

NARRATIVE: CASE EVENT DATE: 20250214
